FAERS Safety Report 25522291 (Version 3)
Quarter: 2025Q3

REPORT INFORMATION
  Report Type: Spontaneous
  Country: GB (occurrence: GB)
  Receive Date: 20250707
  Receipt Date: 20250717
  Transmission Date: 20251020
  Serious: Yes (Other)
  Sender: TEVA
  Company Number: GB-TEVA-VS-3348502

PATIENT
  Age: 39 Year
  Sex: Male

DRUGS (2)
  1. EMTRICITABINE\TENOFOVIR [Suspect]
     Active Substance: EMTRICITABINE\TENOFOVIR
     Indication: HIV infection
     Route: 065
  2. RALTEGRAVIR [Suspect]
     Active Substance: RALTEGRAVIR
     Indication: HIV infection
     Route: 065

REACTIONS (8)
  - Immune reconstitution inflammatory syndrome [Unknown]
  - Splenic lesion [Unknown]
  - Dyspnoea [Unknown]
  - Sarcoidosis of lymph node [Unknown]
  - Granuloma [Unknown]
  - Pigmentation disorder [Unknown]
  - Cutaneous sarcoidosis [Unknown]
  - Skin lesion [Unknown]
